FAERS Safety Report 6739549-5 (Version None)
Quarter: 2010Q2

REPORT INFORMATION
  Report Type: 
  Country: None (occurrence: None)
  Receive Date: 20100525
  Receipt Date: 20100517
  Transmission Date: 20101027
  Serious: Yes (Disabling, Other)
  Sender: FDA-Public Use
  Company Number: GB-MPIJNJ-2010-02387

PATIENT

DRUGS (8)
  1. VELCADE [Suspect]
     Indication: MULTIPLE MYELOMA
     Dosage: UNK
     Dates: start: 20100126, end: 20100409
  2. LANSOPRAZOLE [Concomitant]
     Indication: PROPHYLAXIS
     Dosage: 30 MG, UNK
     Dates: start: 20100126
  3. ACYCLOVIR SODIUM [Concomitant]
     Indication: PROPHYLAXIS
     Dosage: 200 MG, UNK
  4. FLUCONAZOLE [Concomitant]
     Indication: PROPHYLAXIS
     Dosage: 50 MG, UNK
  5. COTRIM [Concomitant]
     Indication: PROPHYLAXIS
     Dosage: 480 MG, UNK
     Dates: start: 20100126
  6. NITROFURANTOIN [Concomitant]
     Indication: URINARY TRACT INFECTION
     Dosage: UNK
     Dates: start: 20100226
  7. DEXAMETHASONE [Concomitant]
     Indication: DRUG USE FOR UNKNOWN INDICATION
     Dosage: UNK
     Dates: start: 20100126
  8. TRIMETHOPRIM [Concomitant]
     Indication: URINARY TRACT INFECTION
     Dosage: UNK
     Dates: start: 20100223

REACTIONS (1)
  - DEAFNESS NEUROSENSORY [None]
